FAERS Safety Report 17643185 (Version 2)
Quarter: 2020Q2

REPORT INFORMATION
  Report Type: Spontaneous
  Country: JP (occurrence: JP)
  Receive Date: 20200408
  Receipt Date: 20200409
  Transmission Date: 20200713
  Serious: Yes (Hospitalization, Other)
  Sender: FDA-Public Use
  Company Number: NVSJ2020JP004009

PATIENT
  Sex: Female

DRUGS (5)
  1. WARFARIN [Interacting]
     Active Substance: WARFARIN
     Dosage: 1.5 MG
     Route: 048
  2. WARFARIN [Interacting]
     Active Substance: WARFARIN
     Indication: PRODUCT USED FOR UNKNOWN INDICATION
     Dosage: 2.5 MG
     Route: 048
  3. CYCLOSPORINE. [Suspect]
     Active Substance: CYCLOSPORINE
     Indication: NEPHROGENIC ANAEMIA
     Dosage: 100 MG
     Route: 065
  4. CYCLOSPORINE. [Interacting]
     Active Substance: CYCLOSPORINE
     Dosage: 100 MG
     Route: 065
  5. WARFARIN [Interacting]
     Active Substance: WARFARIN
     Dosage: 0.5 MG
     Route: 048

REACTIONS (3)
  - Haematochezia [Unknown]
  - International normalised ratio increased [Unknown]
  - Drug interaction [Unknown]
